FAERS Safety Report 6095161-5 (Version None)
Quarter: 2009Q1

REPORT INFORMATION
  Report Type: 
  Country: None (occurrence: None)
  Receive Date: 20090227
  Receipt Date: 20080201
  Transmission Date: 20090719
  Serious: No
  Sender: FDA-Public Use
  Company Number: A0706882A

PATIENT
  Age: 60 Year
  Sex: Male

DRUGS (6)
  1. LAMICTAL [Suspect]
     Dosage: 125MG PER DAY
     Route: 048
     Dates: start: 20071125
  2. DEPAKOTE ER [Concomitant]
  3. PHENYTEK [Concomitant]
  4. INSULIN [Concomitant]
  5. CARTIA XT [Concomitant]
  6. QUINAPRIL [Concomitant]

REACTIONS (1)
  - RASH [None]
